FAERS Safety Report 13509328 (Version 5)
Quarter: 2019Q4

REPORT INFORMATION
  Report Type: Report from Study
  Country: US (occurrence: US)
  Receive Date: 20170503
  Receipt Date: 20191105
  Transmission Date: 20200122
  Serious: No
  Sender: FDA-Public Use
  Company Number: US-SA-2017SA016076

PATIENT
  Age: 74 Year
  Sex: Male

DRUGS (3)
  1. ALIROCUMAB [Suspect]
     Active Substance: ALIROCUMAB
     Indication: BLOOD CHOLESTEROL INCREASED
     Dosage: 75 MG, QOW
     Route: 058
     Dates: start: 20161110
  2. ALIROCUMAB [Suspect]
     Active Substance: ALIROCUMAB
     Indication: HYPOCHOLESTEROLAEMIA
  3. ENALAPRIL [Suspect]
     Active Substance: ENALAPRIL
     Dosage: UNK UNK,UNK

REACTIONS (9)
  - Blood cholesterol increased [Unknown]
  - Sinus disorder [Not Recovered/Not Resolved]
  - Myalgia [Not Recovered/Not Resolved]
  - Ageusia [Not Recovered/Not Resolved]
  - Product storage error [Unknown]
  - Anosmia [Not Recovered/Not Resolved]
  - Nasopharyngitis [Not Recovered/Not Resolved]
  - Unevaluable event [Unknown]
  - Product use issue [Unknown]
